FAERS Safety Report 4715577-6 (Version None)
Quarter: 2005Q3

REPORT INFORMATION
  Report Type: 
  Country: None (occurrence: None)
  Receive Date: 20050715
  Receipt Date: 20050715
  Transmission Date: 20060218
  Serious: Yes (Other)
  Sender: FDA-Public Use
  Company Number: None

PATIENT
  Sex: Female
  Weight: 76 kg

DRUGS (10)
  1. CISPLATIN [Suspect]
     Indication: SQUAMOUS CELL CARCINOMA OF THE CERVIX
     Dosage: 50MG/M2 DAY 1
     Dates: start: 20050621, end: 20050621
  2. CISPLATIN [Suspect]
     Indication: SQUAMOUS CELL CARCINOMA OF THE CERVIX
     Dosage: 50MG/M2 DAY 1
     Dates: start: 20050531
  3. TOPOTECAN [Suspect]
     Dosage: 0.75 MG/M2 DAY 1-3 Q 3 WEEKS
     Dates: start: 20050621, end: 20050621
  4. . [Concomitant]
  5. . [Concomitant]
  6. . [Concomitant]
  7. . [Concomitant]
  8. .. [Concomitant]
  9. OXYCODONE HCL [Concomitant]
  10. PEPCID [Concomitant]

REACTIONS (4)
  - BLOOD POTASSIUM DECREASED [None]
  - FATIGUE [None]
  - SINUS TACHYCARDIA [None]
  - SKIN TURGOR DECREASED [None]
